FAERS Safety Report 21589829 (Version 3)
Quarter: 2022Q4

REPORT INFORMATION
  Report Type: Spontaneous
  Country: US (occurrence: US)
  Receive Date: 20221114
  Receipt Date: 20221215
  Transmission Date: 20230113
  Serious: No
  Sender: FDA-Public Use
  Company Number: US-PFIZER INC-202201287407

PATIENT
  Age: 36 Year
  Sex: Female
  Weight: 63.492 kg

DRUGS (1)
  1. SODIUM CHLORIDE [Suspect]
     Active Substance: SODIUM CHLORIDE
     Indication: Facial discomfort
     Dosage: UNK
     Dates: start: 20221108, end: 20221108

REACTIONS (2)
  - Wrong product administered [Unknown]
  - Burning sensation [Unknown]

NARRATIVE: CASE EVENT DATE: 20221101
